FAERS Safety Report 15887329 (Version 2)
Quarter: 2019Q2

REPORT INFORMATION
  Report Type: Spontaneous
  Country: US (occurrence: US)
  Receive Date: 20190130
  Receipt Date: 20190409
  Transmission Date: 20190711
  Serious: Yes (Other)
  Sender: FDA-Public Use
  Company Number: US-ASTRAZENECA-2018SF33951

PATIENT
  Sex: Female

DRUGS (43)
  1. PRILOSEC [Suspect]
     Active Substance: OMEPRAZOLE MAGNESIUM
     Dosage: GENERIC
     Route: 065
     Dates: start: 2009
  2. GABAPENTIN. [Concomitant]
     Active Substance: GABAPENTIN
     Dosage: 300 MG
  3. OXYBUTYNIN. [Concomitant]
     Active Substance: OXYBUTYNIN CHLORIDE
  4. POLYETHYLENE GLYCOL [Concomitant]
     Active Substance: POLYETHYLENE GLYCOLS
  5. AMITRIPTYLINE [Concomitant]
     Active Substance: AMITRIPTYLINE
  6. HYDROCHLOROTHIAZIDE. [Concomitant]
     Active Substance: HYDROCHLOROTHIAZIDE
  7. LEVOCETIRIZINE [Concomitant]
     Active Substance: LEVOCETIRIZINE
  8. GABAPENTIN. [Concomitant]
     Active Substance: GABAPENTIN
  9. NAPROXEN. [Concomitant]
     Active Substance: NAPROXEN
  10. PANTOPRAZOLE [Suspect]
     Active Substance: PANTOPRAZOLE
     Route: 065
     Dates: start: 2014
  11. PANTOPRAZOLE [Suspect]
     Active Substance: PANTOPRAZOLE
     Route: 065
     Dates: start: 2017, end: 2018
  12. CLOTRIMAZOLE. [Concomitant]
     Active Substance: CLOTRIMAZOLE
  13. LIDOCAINE. [Concomitant]
     Active Substance: LIDOCAINE
  14. SIMVASTATIN. [Concomitant]
     Active Substance: SIMVASTATIN
  15. PRILOSEC [Suspect]
     Active Substance: OMEPRAZOLE MAGNESIUM
     Dosage: GENERIC
     Route: 065
     Dates: start: 2009, end: 2017
  16. PROTONIX [Suspect]
     Active Substance: PANTOPRAZOLE SODIUM
     Dosage: GENERIC
     Route: 065
     Dates: start: 2009
  17. KETOCONAZOLE. [Concomitant]
     Active Substance: KETOCONAZOLE
  18. FUROSEMIDE. [Concomitant]
     Active Substance: FUROSEMIDE
  19. PANTOPRAZOLE SODIUM. [Concomitant]
     Active Substance: PANTOPRAZOLE SODIUM
  20. OMEPRAZOLE. [Concomitant]
     Active Substance: OMEPRAZOLE
  21. CARVEDILOL. [Concomitant]
     Active Substance: CARVEDILOL
  22. FAMOTIDINE. [Concomitant]
     Active Substance: FAMOTIDINE
  23. CELEBREX [Concomitant]
     Active Substance: CELECOXIB
     Dosage: 200 MG
  24. ONDANSETRON [Concomitant]
     Active Substance: ONDANSETRON
  25. CARVEDILOL. [Concomitant]
     Active Substance: CARVEDILOL
  26. ASPIRIN. [Concomitant]
     Active Substance: ASPIRIN
  27. POTASSIUM CHLORIDE. [Concomitant]
     Active Substance: POTASSIUM CHLORIDE
  28. GABAPENTIN. [Concomitant]
     Active Substance: GABAPENTIN
  29. PRILOSEC [Suspect]
     Active Substance: OMEPRAZOLE MAGNESIUM
     Route: 065
     Dates: start: 2009
  30. PROTONIX [Suspect]
     Active Substance: PANTOPRAZOLE SODIUM
     Route: 065
     Dates: start: 2009
  31. ONDANSETRON [Concomitant]
     Active Substance: ONDANSETRON
  32. IBUPROFEN. [Concomitant]
     Active Substance: IBUPROFEN
     Dosage: 600 MG
  33. CLARINEX [Concomitant]
     Active Substance: DESLORATADINE
     Dosage: 5 MG
  34. GABAPENTIN. [Concomitant]
     Active Substance: GABAPENTIN
  35. FLUTICASONE. [Concomitant]
     Active Substance: FLUTICASONE
  36. PRILOSEC [Suspect]
     Active Substance: OMEPRAZOLE MAGNESIUM
     Dosage: GENERIC
     Route: 065
     Dates: start: 20090819
  37. AMOXICILLIN. [Concomitant]
     Active Substance: AMOXICILLIN
     Dosage: 500 MG
  38. VITAMIN D2 [Concomitant]
     Active Substance: ERGOCALCIFEROL
  39. ALENDRONATE SODIUM. [Concomitant]
     Active Substance: ALENDRONATE SODIUM
     Dosage: 35 MG
  40. POTASSIUM CHLORIDE. [Concomitant]
     Active Substance: POTASSIUM CHLORIDE
  41. SIMVASTATIN. [Concomitant]
     Active Substance: SIMVASTATIN
  42. PROCTOZONE [Concomitant]
     Active Substance: HYDROCORTISONE
  43. ASCORBIC ACID. [Concomitant]
     Active Substance: ASCORBIC ACID

REACTIONS (3)
  - Acute kidney injury [Unknown]
  - Renal failure [Unknown]
  - Chronic kidney disease [Not Recovered/Not Resolved]
